FAERS Safety Report 7020449-0 (Version None)
Quarter: 2010Q3

REPORT INFORMATION
  Report Type: 
  Country: None (occurrence: None)
  Receive Date: 20100929
  Receipt Date: 20100927
  Transmission Date: 20110219
  Serious: Yes (Other)
  Sender: FDA-Public Use
  Company Number: US-SANOFI-AVENTIS-2010SA058109

PATIENT
  Age: 54 Year
  Sex: Female
  Weight: 52.6 kg

DRUGS (6)
  1. LOVENOX [Suspect]
     Indication: THROMBOSIS PROPHYLAXIS
     Route: 065
     Dates: start: 20100429, end: 20100429
  2. LOVENOX [Suspect]
     Route: 065
     Dates: start: 20100430, end: 20100501
  3. VOLTAREN [Concomitant]
     Route: 065
  4. ALL OTHER THERAPEUTIC PRODUCTS [Concomitant]
  5. LIPITOR [Concomitant]
  6. FLEXERIL [Concomitant]
     Route: 065

REACTIONS (5)
  - BACK PAIN [None]
  - FALL [None]
  - HYPOAESTHESIA [None]
  - PAIN IN EXTREMITY [None]
  - SPINAL HAEMATOMA [None]
